FAERS Safety Report 10744600 (Version 1)
Quarter: 2015Q1

REPORT INFORMATION
  Report Type: Spontaneous
  Country: FR (occurrence: None)
  Receive Date: 20150126
  Receipt Date: 20150126
  Transmission Date: 20150721
  Serious: Yes (Death, Life-Threatening, Hospitalization, Other)
  Sender: FDA-Public Use
  Company Number: ADR-2015-00173

PATIENT
  Age: 43 Year
  Sex: Female

DRUGS (2)
  1. BACLOFEN ORAL [Suspect]
     Active Substance: BACLOFEN
     Indication: BULIMIA NERVOSA
     Dosage: SEE B5?
     Dates: start: 20140911
  2. BACLOFEN ORAL [Suspect]
     Active Substance: BACLOFEN
     Indication: OVERWEIGHT
     Dosage: SEE B5?
     Dates: start: 20140911

REACTIONS (31)
  - Ankle fracture [None]
  - Sternal fracture [None]
  - Completed suicide [None]
  - Blood pressure decreased [None]
  - Retroperitoneal haemorrhage [None]
  - Pulmonary contusion [None]
  - Fall [None]
  - Anaemia [None]
  - Mydriasis [None]
  - Spinal fracture [None]
  - Disseminated intravascular coagulation [None]
  - Peritoneal haemorrhage [None]
  - Pneumothorax traumatic [None]
  - Rib fracture [None]
  - Dislocation of vertebra [None]
  - Arterial haemorrhage [None]
  - Epistaxis [None]
  - Pulmonary alveolar haemorrhage [None]
  - Shock haemorrhagic [None]
  - Bradycardia [None]
  - Muscle haemorrhage [None]
  - Foot fracture [None]
  - Platelet count decreased [None]
  - Mouth haemorrhage [None]
  - Off label use [None]
  - Pelvic fracture [None]
  - Coma scale abnormal [None]
  - Cardiac arrest [None]
  - Brain oedema [None]
  - Breast haemorrhage [None]
  - Portal vein thrombosis [None]

NARRATIVE: CASE EVENT DATE: 20141127
